FAERS Safety Report 4350909-2 (Version None)
Quarter: 2004Q2

REPORT INFORMATION
  Report Type: 
  Country: None (occurrence: None)
  Receive Date: 20040430
  Receipt Date: 20040428
  Transmission Date: 20050107
  Serious: Yes (Other)
  Sender: FDA-Public Use
  Company Number: US-GLAXOSMITHKLINE-A0508761A

PATIENT
  Sex: Male

DRUGS (3)
  1. ZIAGEN [Suspect]
     Indication: HIV INFECTION
     Dosage: 150MG TWICE PER DAY
     Route: 048
  2. VIDEX [Concomitant]
  3. SUSTIVA [Concomitant]

REACTIONS (4)
  - HYPERSENSITIVITY [None]
  - PERICARDIAL EFFUSION [None]
  - PLEURAL EFFUSION [None]
  - RASH [None]
